FAERS Safety Report 25004645 (Version 1)
Quarter: 2025Q1

REPORT INFORMATION
  Report Type: Spontaneous
  Country: GB (occurrence: GB)
  Receive Date: 20250224
  Receipt Date: 20250224
  Transmission Date: 20250409
  Serious: Yes (Death, Other)
  Sender: PFIZER
  Company Number: None

PATIENT
  Age: 23 Year

DRUGS (6)
  1. FLUCONAZOLE [Interacting]
     Active Substance: FLUCONAZOLE
  2. FLUCONAZOLE [Interacting]
     Active Substance: FLUCONAZOLE
  3. ERYTHROMYCIN [Interacting]
     Active Substance: ERYTHROMYCIN
     Dates: start: 20161023
  4. UNSPECIFIED INGREDIENT [Concomitant]
     Active Substance: UNSPECIFIED INGREDIENT
     Dates: start: 20161023
  5. ALBUMIN HUMAN [Concomitant]
     Active Substance: ALBUMIN HUMAN
     Dates: start: 20161023
  6. FUROSEMIDE [Concomitant]
     Active Substance: FUROSEMIDE

REACTIONS (11)
  - Death [Fatal]
  - Cholelithiasis [Fatal]
  - Arrhythmia [Fatal]
  - Electrocardiogram QT prolonged [Unknown]
  - Drug interaction [Unknown]
  - Pulmonary oedema [Unknown]
  - Unresponsive to stimuli [Unknown]
  - Abdominal sepsis [Unknown]
  - Pancreatitis necrotising [Unknown]
  - Abdominal pain [Unknown]
  - Dyspnoea [Unknown]

NARRATIVE: CASE EVENT DATE: 20161023
